FAERS Safety Report 8295140-3 (Version None)
Quarter: 2012Q2

REPORT INFORMATION
  Report Type: 
  Country: None (occurrence: None)
  Receive Date: 20120418
  Receipt Date: 20120411
  Transmission Date: 20120825
  Serious: Yes (Other)
  Sender: FDA-Public Use
  Company Number: US-PFIZER INC-2012094753

PATIENT
  Age: 78 Year
  Sex: Female

DRUGS (5)
  1. TIKOSYN [Suspect]
     Indication: ATRIAL FIBRILLATION
     Dosage: 0.5 MG, 2X/DAY
     Route: 048
     Dates: start: 20081101
  2. DILTIAZEM [Concomitant]
     Dosage: 19 MG, 2X/DAY
  3. BETAPACE [Concomitant]
     Dosage: UNK
  4. METOPROLOL [Concomitant]
     Dosage: UNK
  5. LISINOPRIL [Concomitant]
     Dosage: 20 MG, UNK

REACTIONS (9)
  - BREAST DISORDER [None]
  - ACTIVITIES OF DAILY LIVING IMPAIRED [None]
  - ALTERED STATE OF CONSCIOUSNESS [None]
  - SWELLING [None]
  - RESPIRATORY ARREST [None]
  - SURGERY [None]
  - LOSS OF CONSCIOUSNESS [None]
  - FATIGUE [None]
  - BENIGN BREAST NEOPLASM [None]
